FAERS Safety Report 4880268-8 (Version None)
Quarter: 2006Q2

REPORT INFORMATION
  Report Type: 
  Country: None (occurrence: None)
  Receive Date: 20060113
  Receipt Date: 20060103
  Transmission Date: 20061013
  Serious: Yes (Life-Threatening, Hospitalization)
  Sender: FDA-Public Use
  Company Number: US-ABBOTT-06P-163-0321084-00

PATIENT
  Sex: Male
  Weight: 101 kg

DRUGS (11)
  1. POTASSIUM CHLORIDE [Suspect]
     Indication: DRUG USE FOR UNKNOWN INDICATION
     Route: 048
  2. CARVEDILOL [Suspect]
     Indication: CARDIAC DISORDER
     Route: 048
     Dates: start: 20050805, end: 20050827
  3. CARVEDILOL [Interacting]
     Route: 048
     Dates: start: 20050828
  4. CARVEDILOL [Suspect]
     Route: 048
     Dates: start: 20050831, end: 20050901
  5. FUROSEMIDE [Interacting]
     Indication: DRUG USE FOR UNKNOWN INDICATION
     Route: 065
  6. AMIODARONE HCL [Suspect]
     Indication: DRUG USE FOR UNKNOWN INDICATION
     Route: 065
  7. AMLODIPINE [Interacting]
     Indication: DRUG USE FOR UNKNOWN INDICATION
     Route: 065
  8. ATORVASTATIN CALCIUM [Suspect]
     Indication: DRUG USE FOR UNKNOWN INDICATION
     Route: 065
  9. LISINOPRIL [Interacting]
     Indication: DRUG USE FOR UNKNOWN INDICATION
     Route: 065
  10. COUMADIN [Interacting]
     Indication: DRUG USE FOR UNKNOWN INDICATION
     Route: 065
  11. MEDICINALPRODUCT NOT SPECIFIED BY SENDER [Concomitant]

REACTIONS (17)
  - APHASIA [None]
  - ASTHENIA [None]
  - BLOOD PRESSURE SYSTOLIC DECREASED [None]
  - DEPRESSED LEVEL OF CONSCIOUSNESS [None]
  - DIZZINESS [None]
  - DRUG INTERACTION [None]
  - DYSPNOEA [None]
  - EXERCISE TOLERANCE DECREASED [None]
  - FEELING ABNORMAL [None]
  - HEADACHE [None]
  - HEART RATE DECREASED [None]
  - HYPOACUSIS [None]
  - HYPOKINESIA [None]
  - NAUSEA [None]
  - SYNCOPE [None]
  - UNEVALUABLE EVENT [None]
  - VERTIGO [None]
